FAERS Safety Report 25794379 (Version 1)
Quarter: 2025Q3

REPORT INFORMATION
  Report Type: Spontaneous
  Country: EU (occurrence: EU)
  Receive Date: 20250912
  Receipt Date: 20250912
  Transmission Date: 20251021
  Serious: Yes (Hospitalization, Other)
  Sender: AMGEN
  Company Number: EU-AMGEN-FRASP2025175788

PATIENT
  Age: 59 Year
  Sex: Male

DRUGS (6)
  1. ECULIZUMAB [Suspect]
     Active Substance: ECULIZUMAB
     Indication: Haemolytic uraemic syndrome
     Route: 065
  2. NEORAL [Suspect]
     Active Substance: CYCLOSPORINE
     Indication: Immunosuppressant drug therapy
     Route: 065
  3. Solupred [Concomitant]
     Indication: Immunosuppressant drug therapy
  4. CELLCEPT [Concomitant]
     Active Substance: MYCOPHENOLATE MOFETIL
     Indication: Immunosuppressant drug therapy
  5. BELATACEPT [Concomitant]
     Active Substance: BELATACEPT
     Indication: Immunosuppressant drug therapy
  6. AZITHROMYCIN [Concomitant]
     Active Substance: AZITHROMYCIN
     Indication: Haemolytic uraemic syndrome

REACTIONS (7)
  - Altered state of consciousness [Recovering/Resolving]
  - Coma [Recovering/Resolving]
  - Status epilepticus [Recovering/Resolving]
  - Balance disorder [Recovering/Resolving]
  - Neurotoxicity [Unknown]
  - Blood pressure fluctuation [Recovering/Resolving]
  - Off label use [Unknown]
